FAERS Safety Report 8965120 (Version 1)
Quarter: 2012Q4

REPORT INFORMATION
  Report Type: 
  Country: US (occurrence: US)
  Receive Date: 20121213
  Receipt Date: 20121213
  Transmission Date: 20130627
  Serious: Yes (Hospitalization)
  Sender: FDA-Public Use
  Company Number: US-BAYER-2012-129822

PATIENT
  Age: 30 Year
  Sex: Female
  Weight: 80.27 kg

DRUGS (10)
  1. BEYAZ [Suspect]
     Indication: HORMONE SUPPRESSION THERAPY
     Dosage: UNK
     Dates: start: 20110502, end: 20120306
  2. YAZ [Suspect]
  3. BACLOFEN [Concomitant]
     Dosage: 20 mg, UNK
  4. MAXALT [Concomitant]
     Dosage: 10 mg, UNK
  5. CYMBALTA [Concomitant]
     Dosage: 120 mg, daily
  6. SYNTHROID [Concomitant]
     Dosage: 0.5 mg, UNK
  7. ALBUTEROL [Concomitant]
     Dosage: As needed
     Route: 045
  8. KLONOPIN [Concomitant]
     Dosage: 1 mg, PRN
  9. OMEPRAZOLE [Concomitant]
     Dosage: 40 mg, UNK
  10. HUMATE-P [Concomitant]
     Indication: VON WILLEBRAND^S DISEASE

REACTIONS (2)
  - Pulmonary embolism [None]
  - Off label use [None]
